FAERS Safety Report 19573549 (Version 1)
Quarter: 2021Q3

REPORT INFORMATION
  Report Type: Spontaneous
  Country: GB (occurrence: GB)
  Receive Date: 20210717
  Receipt Date: 20210717
  Transmission Date: 20211014
  Serious: Yes (Disabling)
  Sender: FDA-Public Use
  Company Number: GB-ACCORD-231718

PATIENT
  Age: 75 Year
  Sex: Female
  Weight: 65 kg

DRUGS (9)
  1. CLENIL MODULITE [Concomitant]
     Active Substance: BECLOMETHASONE DIPROPIONATE
     Indication: SEASONAL ALLERGY
     Dates: start: 20210618
  2. RAMIPRIL. [Concomitant]
     Active Substance: RAMIPRIL
     Indication: HYPERTENSION
     Dates: start: 20200415
  3. ASPIRIN. [Concomitant]
     Active Substance: ASPIRIN
     Dates: start: 20210407, end: 20210608
  4. FEXOFENADINE [Concomitant]
     Active Substance: FEXOFENADINE HYDROCHLORIDE
     Dates: start: 20200415
  5. EZETIMIBE. [Suspect]
     Active Substance: EZETIMIBE
     Indication: PRODUCT USED FOR UNKNOWN INDICATION
     Dates: start: 20200415
  6. ESTRIOL [Concomitant]
     Active Substance: ESTRIOL
     Dates: start: 20200415
  7. LANSOPRAZOLE. [Concomitant]
     Active Substance: LANSOPRAZOLE
     Dates: start: 20200415
  8. TICAGRELOR. [Concomitant]
     Active Substance: TICAGRELOR
     Dates: start: 20210608
  9. DIPYRIDAMOLE. [Concomitant]
     Active Substance: DIPYRIDAMOLE
     Dates: start: 20200714, end: 20210407

REACTIONS (2)
  - Fatigue [Recovering/Resolving]
  - Muscle spasms [Recovering/Resolving]

NARRATIVE: CASE EVENT DATE: 20210702
